FAERS Safety Report 5658104-1 (Version None)
Quarter: 2008Q1

REPORT INFORMATION
  Report Type: 
  Country: None (occurrence: None)
  Receive Date: 20080310
  Receipt Date: 20061214
  Transmission Date: 20080703
  Serious: No
  Sender: FDA-Public Use
  Company Number: US-BAYER-200614991BCC

PATIENT
  Age: 75 Year
  Sex: Female
  Weight: 75 kg

DRUGS (8)
  1. ALEVE [Suspect]
     Indication: GROIN PAIN
     Route: 048
     Dates: start: 20060101
  2. COUMADIN [Concomitant]
  3. ATENOLOL [Concomitant]
  4. ASPIRIN [Concomitant]
     Route: 048
  5. FOSAMAX [Concomitant]
  6. CALCIUM [Concomitant]
  7. ASCORBIC ACID [Concomitant]
  8. HYZAAR [Concomitant]

REACTIONS (1)
  - OEDEMA PERIPHERAL [None]
